FAERS Safety Report 9663585 (Version 1)
Quarter: 2013Q4

REPORT INFORMATION
  Report Type: Spontaneous
  Country: US (occurrence: US)
  Receive Date: 20131101
  Receipt Date: 20131101
  Transmission Date: 20140711
  Serious: No
  Sender: FDA-Public Use
  Company Number: US-PFIZER INC-2013312045

PATIENT
  Age: 87 Year
  Sex: Male
  Weight: 113 kg

DRUGS (4)
  1. CELEBREX [Suspect]
     Indication: ARTHRALGIA
     Dosage: 200 MG, 1X/DAY
     Route: 048
     Dates: start: 201310
  2. NORVASC [Concomitant]
     Dosage: 5 MG, UNK
  3. LIPITOR [Concomitant]
     Dosage: 20 MG, UNK
  4. ASPIRIN [Concomitant]
     Dosage: 325 MG, UNK

REACTIONS (1)
  - Drug ineffective [Unknown]
